FAERS Safety Report 7501799-8 (Version None)
Quarter: 2011Q2

REPORT INFORMATION
  Report Type: 
  Country: None (occurrence: None)
  Receive Date: 20110523
  Receipt Date: 20110523
  Transmission Date: 20111010
  Serious: Yes (Other)
  Sender: FDA-Public Use
  Company Number: None

PATIENT
  Age: 41 Year
  Sex: Female
  Weight: 89.8122 kg

DRUGS (2)
  1. PRISTIQ [Suspect]
     Indication: DEPRESSION
     Dosage: 100MG ONCE DAILY PO
     Route: 048
     Dates: start: 20101215, end: 20110515
  2. PRISTIQ [Suspect]
     Indication: ANXIETY
     Dosage: 100MG ONCE DAILY PO
     Route: 048
     Dates: start: 20101215, end: 20110515

REACTIONS (8)
  - DRUG INEFFECTIVE [None]
  - DEPRESSION [None]
  - SUICIDAL IDEATION [None]
  - CONTUSION [None]
  - CRYING [None]
  - CONDITION AGGRAVATED [None]
  - BRUXISM [None]
  - LIGAMENT DISORDER [None]
